FAERS Safety Report 19621656 (Version 1)
Quarter: 2021Q3

REPORT INFORMATION
  Report Type: Spontaneous
  Country: BR (occurrence: BR)
  Receive Date: 20210728
  Receipt Date: 20210728
  Transmission Date: 20211014
  Serious: Yes (Other)
  Sender: FDA-Public Use
  Company Number: NVSC2021BR164009

PATIENT
  Age: 63 Year
  Sex: Female

DRUGS (5)
  1. ESTRADOT [Suspect]
     Active Substance: ESTRADIOL
     Dosage: 50 UG
     Route: 062
     Dates: start: 2008
  2. ESTRADOT [Suspect]
     Active Substance: ESTRADIOL
     Dosage: 25 UG
     Route: 062
     Dates: start: 2008
  3. OESTROGEL [Concomitant]
     Active Substance: ESTRADIOL
     Indication: PRODUCT USED FOR UNKNOWN INDICATION
     Dosage: UNK
     Route: 065
     Dates: start: 20210612
  4. ESTRADOT [Suspect]
     Active Substance: ESTRADIOL
     Indication: PRODUCT USED FOR UNKNOWN INDICATION
     Dosage: 50 UG
     Route: 062
  5. ESTRADOT [Suspect]
     Active Substance: ESTRADIOL
     Dosage: 100 UG
     Route: 062
     Dates: start: 202105, end: 20210612

REACTIONS (15)
  - Irritability [Unknown]
  - Feeling abnormal [Unknown]
  - Pain in extremity [Unknown]
  - Insomnia [Not Recovered/Not Resolved]
  - Headache [Not Recovered/Not Resolved]
  - Chills [Unknown]
  - Pyrexia [Unknown]
  - Skin sensitisation [Unknown]
  - Night sweats [Not Recovered/Not Resolved]
  - Feeling of despair [Unknown]
  - Wrong technique in product usage process [Not Recovered/Not Resolved]
  - Hypothermia [Not Recovered/Not Resolved]
  - Fear [Unknown]
  - Nervousness [Unknown]
  - Product availability issue [Unknown]

NARRATIVE: CASE EVENT DATE: 202105
